FAERS Safety Report 18445415 (Version 2)
Quarter: 2020Q4

REPORT INFORMATION
  Report Type: Report from Study
  Country: US (occurrence: US)
  Receive Date: 20201030
  Receipt Date: 20201215
  Transmission Date: 20210114
  Serious: Yes (Other)
  Sender: FDA-Public Use
  Company Number: US-TAKEDA-2020TUS007505

PATIENT
  Age: 79 Year
  Sex: Female

DRUGS (1)
  1. IXAZOMIB [Suspect]
     Active Substance: IXAZOMIB
     Indication: PLASMA CELL MYELOMA
     Dosage: 4 MILLIGRAM
     Route: 048
     Dates: start: 20200204

REACTIONS (7)
  - Amnesia [Unknown]
  - Hypoacusis [Unknown]
  - Abdominal pain upper [Unknown]
  - Product dose omission issue [Recovered/Resolved]
  - Confusional state [Unknown]
  - Anxiety [Unknown]
  - Angina pectoris [Unknown]

NARRATIVE: CASE EVENT DATE: 202007
